FAERS Safety Report 15273794 (Version 2)
Quarter: 2018Q4

REPORT INFORMATION
  Report Type: Spontaneous
  Country: US (occurrence: US)
  Receive Date: 20180813
  Receipt Date: 20181108
  Transmission Date: 20190204
  Serious: No
  Sender: FDA-Public Use
  Company Number: US-BIOGEN-2018BI00518887

PATIENT
  Age: 41 Year
  Sex: Female

DRUGS (8)
  1. TECFIDERA [Suspect]
     Active Substance: DIMETHYL FUMARATE
     Route: 048
     Dates: start: 201810
  2. TECFIDERA [Suspect]
     Active Substance: DIMETHYL FUMARATE
     Dosage: STARTING DOSE
     Route: 048
     Dates: start: 20180115
  3. TECFIDERA [Suspect]
     Active Substance: DIMETHYL FUMARATE
     Dosage: MAINTENANCE DOSE
     Route: 048
     Dates: start: 20180110
  4. TECFIDERA [Suspect]
     Active Substance: DIMETHYL FUMARATE
     Indication: MULTIPLE SCLEROSIS
     Dosage: STARTING DOSE
     Route: 048
     Dates: start: 20180108
  5. TECFIDERA [Suspect]
     Active Substance: DIMETHYL FUMARATE
     Dosage: MAINTENANCE DOSE
     Route: 048
     Dates: start: 20180115
  6. TECFIDERA [Suspect]
     Active Substance: DIMETHYL FUMARATE
     Dosage: STARTING DOSE
     Route: 048
     Dates: start: 20180125, end: 20180131
  7. TECFIDERA [Suspect]
     Active Substance: DIMETHYL FUMARATE
     Dosage: MAINTENANCE DOSE
     Route: 048
     Dates: start: 20180201
  8. TECFIDERA [Suspect]
     Active Substance: DIMETHYL FUMARATE
     Dosage: STARTING DOSE
     Route: 048
     Dates: start: 201801, end: 201801

REACTIONS (34)
  - Dry eye [Unknown]
  - Peripheral swelling [Recovered/Resolved]
  - Gait disturbance [Recovered/Resolved]
  - Dry skin [Unknown]
  - White blood cell count decreased [Unknown]
  - Rhinorrhoea [Recovered/Resolved]
  - Fall [Recovered/Resolved]
  - Flushing [Recovered/Resolved]
  - Dry mouth [Unknown]
  - Fatigue [Unknown]
  - Mammogram abnormal [Unknown]
  - Pyrexia [Unknown]
  - Abdominal discomfort [Recovered/Resolved]
  - Muscle tightness [Unknown]
  - Klebsiella infection [Unknown]
  - Skin exfoliation [Unknown]
  - Skin tightness [Unknown]
  - Diarrhoea [Recovered/Resolved]
  - Headache [Unknown]
  - Dry throat [Recovered/Resolved]
  - Hypoaesthesia [Unknown]
  - Product dose omission [Recovered/Resolved]
  - Product storage error [Unknown]
  - Rash pruritic [Unknown]
  - Menstruation irregular [Unknown]
  - Oropharyngeal pain [Recovered/Resolved]
  - Gastrointestinal disorder [Recovered/Resolved]
  - Hepatic enzyme increased [Unknown]
  - Palpitations [Unknown]
  - Balance disorder [Recovered/Resolved]
  - Pain in extremity [Unknown]
  - Cough [Unknown]
  - Pruritus [Recovered/Resolved]
  - Burning sensation [Recovered/Resolved]

NARRATIVE: CASE EVENT DATE: 20180227
